FAERS Safety Report 15028978 (Version 2)
Quarter: 2018Q2

REPORT INFORMATION
  Report Type: Spontaneous
  Country: DE (occurrence: DE)
  Receive Date: 20180619
  Receipt Date: 20180619
  Transmission Date: 20180711
  Serious: Yes (Hospitalization, Other)
  Sender: FDA-Public Use
  Company Number: PHHY2018DE024639

PATIENT
  Sex: Female

DRUGS (21)
  1. CYCLOPHOSPHAMIDE. [Suspect]
     Active Substance: CYCLOPHOSPHAMIDE
     Indication: PRODUCT USED FOR UNKNOWN INDICATION
     Dosage: 750 MG/M2, Q2W
     Route: 042
     Dates: start: 20170228
  2. DOXORUBICIN [Suspect]
     Active Substance: DOXORUBICIN
     Indication: B-CELL LYMPHOMA
     Dosage: 50 MG/M2, Q2W
     Route: 042
     Dates: start: 20170228
  3. PEGFILGRASTIM [Suspect]
     Active Substance: PEGFILGRASTIM
     Indication: B-CELL LYMPHOMA
     Dosage: 6 MG, DAY 4 AFTER CHEMO
     Route: 058
  4. AMPHOTERICIN B. [Concomitant]
     Active Substance: AMPHOTERICIN B
     Indication: PROPHYLAXIS
     Dosage: 6 DF, QD (2 DF, TID (6/D, 2-2-2))
     Route: 048
     Dates: start: 20170306
  5. RITUXIMAB. [Suspect]
     Active Substance: RITUXIMAB
     Indication: B-CELL LYMPHOMA
     Dosage: 375 MG/M2, Q2W
     Route: 042
     Dates: start: 20170223
  6. PREDNISOLON [Suspect]
     Active Substance: PREDNISOLONE
     Indication: B-CELL LYMPHOMA
     Dosage: 100 MG, QD (FOR 5 DAYS)
     Route: 048
     Dates: start: 20170228
  7. ACICLOVIR [Concomitant]
     Active Substance: ACYCLOVIR
     Indication: INFECTION PROPHYLAXIS
     Dosage: 1600 MG, QD (400 MG, 4 IN 1 D)
     Route: 048
     Dates: start: 20170228
  8. SULFAMETHOXAZOLE [Concomitant]
     Active Substance: SULFAMETHOXAZOLE
     Indication: PRODUCT USED FOR UNKNOWN INDICATION
     Dosage: 960 MG, UNK 2/D, SATURDAY/SUNDAY
     Route: 048
  9. PREDNISOLON [Suspect]
     Active Substance: PREDNISOLONE
     Dosage: 100 MG, QD (FOR 5 DAYS)
     Route: 048
     Dates: start: 20170317
  10. VINCRISTINE [Suspect]
     Active Substance: VINCRISTINE
     Indication: PRODUCT USED FOR UNKNOWN INDICATION
     Dosage: 2 MG/M2, Q2W
     Route: 042
     Dates: start: 20170228
  11. LIPEGFILGRASTIM [Suspect]
     Active Substance: LIPEGFILGRASTIM
     Dosage: 6 MG, UNK (6 MG, DAY 4 AFTER CHEMO)
     Route: 058
  12. CYCLOPHOSPHAMIDE. [Suspect]
     Active Substance: CYCLOPHOSPHAMIDE
     Dosage: 750 MG/M2, Q2W
     Route: 042
     Dates: start: 20170317
  13. CIPROFLOXACIN. [Concomitant]
     Active Substance: CIPROFLOXACIN
     Indication: INFECTION PROPHYLAXIS
     Dosage: 1000 MG, QD (500 MG, 2 IN 1 D)
     Route: 048
     Dates: start: 20170305
  14. DOXORUBICIN [Suspect]
     Active Substance: DOXORUBICIN
     Dosage: 50 MG/M2, Q2W
     Route: 042
     Dates: start: 20170317
  15. ALLOPURINOL. [Concomitant]
     Active Substance: ALLOPURINOL
     Indication: PROPHYLAXIS
     Dosage: 300 MG, QD
     Route: 048
     Dates: start: 201702
  16. PANTOPRAZOL [Concomitant]
     Active Substance: PANTOPRAZOLE SODIUM
     Indication: PROPHYLAXIS
     Dosage: 40 MG, UNK (ON DEMAND)
     Route: 048
  17. COLECALCIFEROL [Concomitant]
     Active Substance: CHOLECALCIFEROL
     Indication: VITAMIN SUPPLEMENTATION
     Dosage: 40000 IU, QW (1 IN 1 WK)
     Route: 048
     Dates: start: 20170219
  18. LIPEGFILGRASTIM [Suspect]
     Active Substance: LIPEGFILGRASTIM
     Indication: B-CELL LYMPHOMA
     Dosage: 6 MG, UNK (6 MG, DAY 4 AFTER CHEMO)
     Route: 058
  19. RITUXIMAB. [Suspect]
     Active Substance: RITUXIMAB
     Dosage: 375 MG/M2, Q2W
     Route: 042
     Dates: start: 20170303
  20. RITUXIMAB. [Suspect]
     Active Substance: RITUXIMAB
     Dosage: 375 MG/M2, Q2W
     Route: 042
     Dates: start: 20170316
  21. VINCRISTINE [Suspect]
     Active Substance: VINCRISTINE
     Dosage: 2 MG/M2, Q2W
     Route: 042
     Dates: start: 20170317

REACTIONS (3)
  - Ileus [Recovered/Resolved]
  - Febrile neutropenia [Unknown]
  - Large intestinal obstruction [Recovered/Resolved]

NARRATIVE: CASE EVENT DATE: 20170312
